FAERS Safety Report 8441880 (Version 6)
Quarter: 2013Q1

REPORT INFORMATION
  Report Type: Report from Study
  Country: TR (occurrence: TR)
  Receive Date: 20120305
  Receipt Date: 20130125
  Transmission Date: 20140127
  Serious: Yes (Life-Threatening, Hospitalization)
  Sender: FDA-Public Use
  Company Number: PHHO2012TR003614

PATIENT
  Age: 11 Year
  Sex: Male
  Weight: 32 kg

DRUGS (4)
  1. ACZ885 [Suspect]
     Indication: JUVENILE IDIOPATHIC ARTHRITIS
     Dosage: 0.80 ML, UNK
     Route: 058
     Dates: start: 20111130
  2. ACZ885 [Suspect]
     Dosage: 0.86 ML, UNK
     Route: 058
     Dates: start: 20111226
  3. ACZ885 [Suspect]
     Dosage: 0.85 ML, UNK
     Route: 058
     Dates: start: 20120123
  4. ACZ885 [Suspect]
     Dosage: 0.88 ML, UNK
     Route: 058
     Dates: start: 20120222

REACTIONS (1)
  - Histiocytosis haematophagic [Recovered/Resolved]
